FAERS Safety Report 4830958-8 (Version None)
Quarter: 2005Q4

REPORT INFORMATION
  Report Type: 
  Country: None (occurrence: None)
  Receive Date: 20051114
  Receipt Date: 20051102
  Transmission Date: 20060501
  Serious: Yes (Death)
  Sender: FDA-Public Use
  Company Number: 2005JP002133

PATIENT
  Age: 59 Year
  Sex: Female
  Weight: 45 kg

DRUGS (23)
  1. TACROLIMUS CAPSULES(TACROLIMUS) CAPSULE [Suspect]
     Indication: RHEUMATOID ARTHRITIS
     Dosage: SEE IMAGE
     Route: 048
     Dates: start: 20050722, end: 20050101
  2. TACROLIMUS CAPSULES(TACROLIMUS) CAPSULE [Suspect]
     Indication: RHEUMATOID ARTHRITIS
     Dosage: SEE IMAGE
     Route: 048
     Dates: start: 20050714, end: 20050721
  3. PREDNISONE [Concomitant]
  4. METHYLPREDNISOLONE (METHYLPREDNISOLONE) INJECTION [Concomitant]
  5. VOLTAREN - SLOW RLEASE [Concomitant]
  6. DOGMATYL (SULPRIDE) [Concomitant]
  7. TOLEDOMIN (MILNACIPRAN HYDROCHLORIDE) [Concomitant]
  8. RABEPRAZOLE SODIUM [Concomitant]
  9. LUPRAC (TORASEMIDE) [Concomitant]
  10. LORAZEPAM [Concomitant]
  11. SEDIEL (TANDOSPIRONE CITRATE) [Concomitant]
  12. PURSENNIDE [Concomitant]
  13. LAXOBERON (SODIUM PICOSULFATE) [Concomitant]
  14. JUNCHO-TO [Concomitant]
  15. HEAVY KAMA G (MAGNESIUM OXIDE) [Concomitant]
  16. LAC B (LACTOBACILLUS BIFIDUS, LYOPHILIZED) [Concomitant]
  17. PRIMPERAN TAB [Concomitant]
  18. MALFA (ALUMINUM HYDROXIDE GEL) [Concomitant]
  19. SEVEN EP (ENZYMES NOS) [Concomitant]
  20. COTRIM [Concomitant]
  21. AMINOFLUID (GLUCOSE, AMINO ACIDS NOS, ELECTROLYTES NOS) INJECTION [Concomitant]
  22. MIXID (AMINO ACIDS NOS, ELECTROLYTES NOS, CARBOHYDRATES NOS) INJECTION [Concomitant]
  23. NEOLAMIN MULTI V (VITAMINS NOS) INJECTION [Concomitant]

REACTIONS (6)
  - AMYLOIDOSIS [None]
  - CONDITION AGGRAVATED [None]
  - DRUG INEFFECTIVE [None]
  - GENERAL PHYSICAL HEALTH DETERIORATION [None]
  - PULMONARY EMBOLISM [None]
  - VOMITING [None]
